FAERS Safety Report 6611043-1 (Version None)
Quarter: 2010Q1

REPORT INFORMATION
  Report Type: 
  Country: None (occurrence: None)
  Receive Date: 20100303
  Receipt Date: 20100217
  Transmission Date: 20100710
  Serious: Yes (Hospitalization)
  Sender: FDA-Public Use
  Company Number: ES-RANBAXY-2010RR-31328

PATIENT
  Age: 51 Year
  Sex: Female

DRUGS (1)
  1. RANITIDINE [Suspect]
     Dosage: 50 MG, UNK

REACTIONS (3)
  - ANAPHYLACTOID REACTION [None]
  - BRONCHOSPASM [None]
  - CIRCULATORY COLLAPSE [None]
